FAERS Safety Report 14960941 (Version 1)
Quarter: 2018Q2

REPORT INFORMATION
  Report Type: Report from Study
  Country: US (occurrence: US)
  Receive Date: 20180531
  Receipt Date: 20180531
  Transmission Date: 20180711
  Serious: No
  Sender: FDA-Public Use
  Company Number: US-AMGEN-USASL2017174309

PATIENT
  Age: 72 Year
  Sex: Male

DRUGS (2)
  1. REPATHA [Suspect]
     Active Substance: EVOLOCUMAB
     Indication: TYPE V HYPERLIPIDAEMIA
     Dosage: 420 MG, QMO
     Route: 058
     Dates: start: 20170717
  2. REPATHA [Suspect]
     Active Substance: EVOLOCUMAB
     Indication: HYPERCHOLESTEROLAEMIA

REACTIONS (5)
  - Rhinorrhoea [Not Recovered/Not Resolved]
  - Malaise [Unknown]
  - Cough [Unknown]
  - Injection site bruising [Unknown]
  - Productive cough [Unknown]

NARRATIVE: CASE EVENT DATE: 201707
